FAERS Safety Report 5873943-X (Version None)
Quarter: 2008Q3

REPORT INFORMATION
  Report Type: 
  Country: None (occurrence: None)
  Receive Date: 20080905
  Receipt Date: 20080905
  Transmission Date: 20090109
  Serious: Yes (Hospitalization)
  Sender: FDA-Public Use
  Company Number: None

PATIENT
  Sex: Male
  Weight: 57 kg

DRUGS (1)
  1. DEFEROXAMINE MESYLATE [Suspect]
     Indication: THALASSAEMIA
     Dosage: 2000MG 5 TIMES A WEEK SQ
     Route: 058
     Dates: start: 20080430, end: 20080519

REACTIONS (1)
  - INJECTION SITE REACTION [None]
